FAERS Safety Report 22163278 (Version 1)
Quarter: 2023Q2

REPORT INFORMATION
  Report Type: Spontaneous
  Country: NL (occurrence: NL)
  Receive Date: 20230401
  Receipt Date: 20230401
  Transmission Date: 20230722
  Serious: Yes (Death, Life-Threatening, Hospitalization, Other)
  Sender: FDA-Public Use
  Company Number: NL-LRB-00871498

PATIENT
  Sex: Male
  Weight: 80 kg

DRUGS (5)
  1. ACETAMINOPHEN [Suspect]
     Active Substance: ACETAMINOPHEN
     Indication: Pain
     Dosage: 1000 MILLIGRAM, 3 TIMES A DAY (3 X PER DAG 2 STUKS)
     Route: 065
     Dates: start: 20170501
  2. RIVAROXABAN [Suspect]
     Active Substance: RIVAROXABAN
     Indication: Pulmonary embolism
     Dosage: 20 MILLIGRAM, ONCE A DAY (1DD20MG)
     Route: 065
     Dates: start: 20220520
  3. PIRFENIDONE [Suspect]
     Active Substance: PIRFENIDONE
     Indication: Idiopathic pulmonary fibrosis
     Dosage: 3 DOSAGE FORM, 3 TIMES A DAY (3X P DAG 3 STUKS; OP 14-2-23 VERLAAGD NAAR 3D2STUK)
     Route: 065
     Dates: start: 20230130
  4. ACETYLCYSTEINE [Concomitant]
     Active Substance: ACETYLCYSTEINE
     Indication: Product used for unknown indication
     Dosage: UNK (OPLOSSING VOOR INFUUS, 200 MG/ML (MILLIGRAM PER MILLILITER))
     Route: 065
  5. DEXTROSE [Concomitant]
     Active Substance: DEXTROSE\DEXTROSE MONOHYDRATE
     Indication: Product used for unknown indication
     Dosage: UNK (INFUSIEVLOEISTOF, 100 MG/ML (MILLIGRAM PER MILLILITER))
     Route: 065

REACTIONS (1)
  - Acute hepatic failure [Fatal]
